FAERS Safety Report 5218473-3 (Version None)
Quarter: 2007Q1

REPORT INFORMATION
  Report Type: 
  Country: None (occurrence: None)
  Receive Date: 20061201
  Receipt Date: 20060512
  Transmission Date: 20070707
  Serious: Yes (Other)
  Sender: FDA-Public Use
  Company Number: SUS1-2006-00507

PATIENT
  Age: 12 Year
  Sex: Male

DRUGS (3)
  1. ADDERALL 10 [Suspect]
     Indication: ATTENTION DEFICIT/HYPERACTIVITY DISORDER
     Dosage: 20 MG, 1X/DAY:QD 20 MG ONCE DAILY, EVERY OTHER DAY
     Dates: start: 20060401, end: 20060501
  2. ADDERALL 10 [Suspect]
     Indication: ATTENTION DEFICIT/HYPERACTIVITY DISORDER
     Dosage: 20 MG, 1X/DAY:QD 20 MG ONCE DAILY, EVERY OTHER DAY
     Dates: start: 20060501
  3. CITALOPRAM HYDROBROMIDE [Concomitant]

REACTIONS (2)
  - ANOREXIA [None]
  - WEIGHT DECREASED [None]
